FAERS Safety Report 4383515-4 (Version None)
Quarter: 2004Q2

REPORT INFORMATION
  Report Type: 
  Country: None (occurrence: None)
  Receive Date: 20040623
  Receipt Date: 20040615
  Transmission Date: 20050107
  Serious: Yes (Life-Threatening, Hospitalization)
  Sender: FDA-Public Use
  Company Number: PHEH2004US06560

PATIENT

DRUGS (5)
  1. ZELNORM [Suspect]
     Indication: IRRITABLE BOWEL SYNDROME
     Dosage: 6 MG, BID
     Route: 048
     Dates: start: 20040501, end: 20040601
  2. EFFEXOR XR [Concomitant]
     Dosage: 225 MG, QD
  3. MIRTAZAPINE [Concomitant]
     Dosage: 15 MG, QD
  4. MIRAPEX [Concomitant]
     Dosage: 5 MG, QHS
  5. DURAGESIC [Concomitant]

REACTIONS (4)
  - BLOOD CREATINE PHOSPHOKINASE INCREASED [None]
  - COMA [None]
  - HYPOTENSION [None]
  - SEROTONIN SYNDROME [None]
